FAERS Safety Report 11031283 (Version 1)
Quarter: 2015Q2

REPORT INFORMATION
  Report Type: Spontaneous
  Country: US (occurrence: US)
  Receive Date: 20150415
  Receipt Date: 20150415
  Transmission Date: 20150821
  Serious: Yes (Other)
  Sender: FDA-Public Use
  Company Number: US-PFIZER INC-2015123037

PATIENT
  Age: 53 Year
  Sex: Female
  Weight: 63 kg

DRUGS (12)
  1. LEVOFLOXACIN. [Concomitant]
     Active Substance: LEVOFLOXACIN
     Dosage: 500 MG, 1X/DAY
  2. PANTOPRAZOLE [Concomitant]
     Active Substance: PANTOPRAZOLE SODIUM
     Dosage: 40 MG, 2X/DAY
     Route: 048
  3. PENTAMIDINE [Concomitant]
     Active Substance: PENTAMIDINE
     Dosage: 300 MG, UNK
  4. VITAMIN B12 [Concomitant]
     Active Substance: CYANOCOBALAMIN
     Dosage: 250 ?G, 1X/DAY
     Route: 048
  5. NYSTATIN. [Concomitant]
     Active Substance: NYSTATIN
     Dosage: 500000 IU, 4X/DAY
     Route: 048
  6. VALCYTE [Concomitant]
     Active Substance: VALGANCICLOVIR HYDROCHLORIDE
     Dosage: 900 MG, 2X/DAY
     Route: 048
  7. SYNTHROID [Concomitant]
     Active Substance: LEVOTHYROXINE SODIUM
     Dosage: 0.05 MG, 1X/DAY
  8. RAPAMUNE [Suspect]
     Active Substance: SIROLIMUS
     Indication: STEM CELL TRANSPLANT
     Dosage: 0.5 MG, 2X/DAY
     Route: 048
  9. FOLIC ACID. [Concomitant]
     Active Substance: FOLIC ACID
     Dosage: 1 MG, 1X/DAY
     Route: 048
  10. FLUCONAZOLE. [Concomitant]
     Active Substance: FLUCONAZOLE
     Dosage: 400 MG, 1X/DAY
     Route: 048
  11. ZOFRAN /00955301/ [Concomitant]
     Active Substance: ONDANSETRON HYDROCHLORIDE
     Dosage: 8 MG, 3X/DAY
     Route: 048
  12. OXYCODONE [Concomitant]
     Active Substance: OXYCODONE
     Dosage: 5 MG, Q 4H

REACTIONS (6)
  - Graft versus host disease [Unknown]
  - Cough [Unknown]
  - Rectal tenesmus [Unknown]
  - Off label use [Unknown]
  - Paraesthesia [Unknown]
  - Contusion [Unknown]
